FAERS Safety Report 17795629 (Version 1)
Quarter: 2020Q2

REPORT INFORMATION
  Report Type: Spontaneous
  Country: GB (occurrence: GB)
  Receive Date: 20200516
  Receipt Date: 20200516
  Transmission Date: 20200714
  Serious: Yes (Hospitalization)
  Sender: FDA-Public Use
  Company Number: GB-TEVA-2020-GB-1235187

PATIENT
  Age: 14 Year
  Sex: Female
  Weight: 31 kg

DRUGS (11)
  1. IFOSFAMIDE. [Suspect]
     Active Substance: IFOSFAMIDE
     Indication: OSTEOSARCOMA METASTATIC
     Dosage: 3RD CYCLE
  2. NORETHISTERONE [Concomitant]
     Active Substance: NORETHINDRONE
  3. LENVATINIB [Suspect]
     Active Substance: LENVATINIB
     Indication: OSTEOSARCOMA METASTATIC
     Dosage: 3RD CYCLE, UNIT DOSE 14 MG
     Route: 048
     Dates: end: 20200218
  4. COTRIMOXAZOLE [Concomitant]
     Active Substance: SULFAMETHOXAZOLE\TRIMETHOPRIM
  5. LEVOTHYROXINE. [Concomitant]
     Active Substance: LEVOTHYROXINE
  6. ETOPOSIDE. [Suspect]
     Active Substance: ETOPOSIDE
     Indication: OSTEOSARCOMA METASTATIC
     Dosage: 3RD CYCLE
  7. OMEPRAZOLE. [Concomitant]
     Active Substance: OMEPRAZOLE
  8. METOCLOPRAMIDE. [Concomitant]
     Active Substance: METOCLOPRAMIDE
  9. COLECALCIFEROL [Concomitant]
     Active Substance: CHOLECALCIFEROL
  10. MELATONIN [Concomitant]
     Active Substance: MELATONIN
  11. LEVETIRACETAM. [Concomitant]
     Active Substance: LEVETIRACETAM

REACTIONS (16)
  - Urine output decreased [Unknown]
  - Anaemia [Unknown]
  - Therapeutic response unexpected [Unknown]
  - Dyspnoea [Unknown]
  - Dehydration [Recovered/Resolved]
  - Respiratory syncytial virus infection [Unknown]
  - Oesophagitis [Recovered/Resolved]
  - Hypoxia [Recovered/Resolved]
  - Vomiting [Recovered/Resolved]
  - Acute kidney injury [Unknown]
  - Escherichia urinary tract infection [Unknown]
  - Mucosal inflammation [Unknown]
  - Bone marrow failure [Unknown]
  - Hypophagia [Unknown]
  - Pyrexia [Unknown]
  - Respiratory distress [Recovered/Resolved]

NARRATIVE: CASE EVENT DATE: 20200411
